FAERS Safety Report 9872611 (Version 2)
Quarter: 2014Q1

REPORT INFORMATION
  Report Type: Other
  Country: US (occurrence: US)
  Receive Date: 20140206
  Receipt Date: 20140206
  Transmission Date: 20141002
  Serious: No
  Sender: FDA-Public Use
  Company Number: US-ACORDA-ACO_100680_2013

PATIENT
  Sex: Female

DRUGS (4)
  1. AMPYRA [Suspect]
     Indication: MULTIPLE SCLEROSIS
     Dosage: 10 MG, BID
     Route: 048
     Dates: start: 20131128
  2. OMEPRAZOLE [Concomitant]
     Indication: PRODUCT USED FOR UNKNOWN INDICATION
     Dosage: 20 MG, UNK
     Route: 065
  3. REBIF [Concomitant]
     Indication: PRODUCT USED FOR UNKNOWN INDICATION
     Dosage: 44 ?G, UNK
     Route: 065
  4. TIZANIDINE [Concomitant]
     Indication: PRODUCT USED FOR UNKNOWN INDICATION
     Dosage: 4 MG, UNK
     Route: 065

REACTIONS (3)
  - Injection site pain [Unknown]
  - Gait disturbance [Unknown]
  - Pain in extremity [Unknown]
